FAERS Safety Report 20876683 (Version 1)
Quarter: 2022Q2

REPORT INFORMATION
  Report Type: Spontaneous
  Country: PL (occurrence: PL)
  Receive Date: 20220526
  Receipt Date: 20220526
  Transmission Date: 20220721
  Serious: Yes (Hospitalization)
  Sender: FDA-Public Use
  Company Number: None

PATIENT
  Age: 48 Year
  Sex: Female
  Weight: 76 kg

DRUGS (4)
  1. LEFLUNOMIDE [Suspect]
     Active Substance: LEFLUNOMIDE
     Indication: Rheumatoid arthritis
     Dosage: 20MG, FREQUENCY TIME 24HRS
     Route: 048
     Dates: start: 201106
  2. TOCILIZUMAB [Suspect]
     Active Substance: TOCILIZUMAB
     Indication: Rheumatoid arthritis
     Dosage: 600MG, FREQUENCY TIME 4WEEKS, DURATION 4YEARS
     Route: 042
     Dates: start: 20140430, end: 20180522
  3. CONTROLOC [Suspect]
     Active Substance: PANTOPRAZOLE SODIUM
     Indication: Rheumatoid arthritis
     Dosage: 40MG, FREQUENCY TIME 24HRS
     Route: 048
     Dates: start: 2008
  4. METHOTREXATE [Suspect]
     Active Substance: METHOTREXATE
     Indication: Rheumatoid arthritis
     Dosage: 25MG, FREQUENCY TIME 1WEEKS
     Route: 048

REACTIONS (1)
  - Diverticulitis [Recovering/Resolving]

NARRATIVE: CASE EVENT DATE: 20180616
